FAERS Safety Report 18413782 (Version 3)
Quarter: 2021Q1

REPORT INFORMATION
  Report Type: Spontaneous
  Country: US (occurrence: US)
  Receive Date: 20201022
  Receipt Date: 20210126
  Transmission Date: 20210419
  Serious: Yes (Other)
  Sender: FDA-Public Use
  Company Number: US-ASTRAZENECA-2020SF35503

PATIENT
  Age: 71 Year
  Sex: Female
  Weight: 56.7 kg

DRUGS (5)
  1. PAXIL [Concomitant]
     Active Substance: PAROXETINE HYDROCHLORIDE
     Indication: NERVOUS SYSTEM DISORDER
     Route: 065
     Dates: start: 2010
  2. OMEPRAZOLE. [Suspect]
     Active Substance: OMEPRAZOLE
     Indication: GASTROOESOPHAGEAL REFLUX DISEASE
     Dosage: 40.0MG UNKNOWN
     Route: 048
     Dates: start: 2015
  3. SYMBICORT [Suspect]
     Active Substance: BUDESONIDE\FORMOTEROL FUMARATE DIHYDRATE
     Indication: CHRONIC OBSTRUCTIVE PULMONARY DISEASE
     Dosage: 160/4.5 MCG, TWO PUFFS IN MORNING AND TWO PUFFS AT NIGHT
     Route: 055
     Dates: start: 2006
  4. AMLODIPINE [Concomitant]
     Active Substance: AMLODIPINE BESYLATE
     Indication: BLOOD PRESSURE ABNORMAL
     Dosage: 10.0MG UNKNOWN
     Route: 065
     Dates: start: 2017
  5. OXYGEN. [Concomitant]
     Active Substance: OXYGEN
     Route: 065

REACTIONS (11)
  - Gait disturbance [Unknown]
  - Jaw disorder [Unknown]
  - Tongue injury [Unknown]
  - Teeth brittle [Unknown]
  - Mastication disorder [Unknown]
  - Hypophagia [Unknown]
  - Oral mucosal exfoliation [Unknown]
  - Tooth injury [Unknown]
  - Tooth fracture [Unknown]
  - Chronic obstructive pulmonary disease [Unknown]
  - Tooth disorder [Unknown]
